FAERS Safety Report 8314877-0 (Version None)
Quarter: 2012Q2

REPORT INFORMATION
  Report Type: 
  Country: None (occurrence: None)
  Receive Date: 20120426
  Receipt Date: 20090210
  Transmission Date: 20120825
  Serious: Yes (Hospitalization)
  Sender: FDA-Public Use
  Company Number: US-TEVA-US025381

PATIENT
  Age: 49 Year
  Sex: Female
  Weight: 66 kg

DRUGS (2)
  1. MODAFINIL [Suspect]
     Indication: DRUG DEPENDENCE
     Dosage: MODAFINIL OR PLACEBO
     Route: 048
     Dates: start: 20081208
  2. METHAMPHETAMINE HYDROCHLORIDE [Concomitant]

REACTIONS (3)
  - RESPIRATORY DISTRESS [None]
  - VIRAL INFECTION [None]
  - CHEST PAIN [None]
